FAERS Safety Report 4869742-8 (Version None)
Quarter: 2005Q4

REPORT INFORMATION
  Report Type: 
  Country: None (occurrence: None)
  Receive Date: 20051223
  Receipt Date: 20051207
  Transmission Date: 20060501
  Serious: Yes (Hospitalization, Other)
  Sender: FDA-Public Use
  Company Number: US200512001156

PATIENT
  Sex: Female

DRUGS (3)
  1. EVISTA [Suspect]
     Indication: BONE DENSITY DECREASED
     Dosage: ORAL
     Route: 048
     Dates: start: 20030101
  2. FOSAMAX [Concomitant]
  3. ARIMIDEX [Concomitant]

REACTIONS (1)
  - BREAST CANCER FEMALE [None]
